FAERS Safety Report 18715579 (Version 7)
Quarter: 2022Q2

REPORT INFORMATION
  Report Type: Report from Study
  Country: JP (occurrence: JP)
  Receive Date: 20210108
  Receipt Date: 20220621
  Transmission Date: 20220721
  Serious: Yes (Hospitalization)
  Sender: FDA-Public Use
  Company Number: JP-ABBVIE-20K-087-3620259-00

PATIENT
  Age: 72 Year
  Sex: Male

DRUGS (2)
  1. CARBIDOPA\LEVODOPA [Suspect]
     Active Substance: CARBIDOPA\LEVODOPA
     Indication: Parkinson^s disease
     Route: 050
     Dates: start: 20200828
  2. CARBIDOPA\LEVODOPA [Suspect]
     Active Substance: CARBIDOPA\LEVODOPA

REACTIONS (13)
  - Cerebral infarction [Unknown]
  - Malaise [Unknown]
  - Back pain [Unknown]
  - Mobility decreased [Unknown]
  - Visual impairment [Unknown]
  - Speech disorder [Unknown]
  - Cognitive disorder [Unknown]
  - Fatigue [Unknown]
  - On and off phenomenon [Unknown]
  - Stoma site extravasation [Unknown]
  - Stoma site discharge [Unknown]
  - Therapeutic product effect delayed [Unknown]
  - On and off phenomenon [Unknown]

NARRATIVE: CASE EVENT DATE: 20200101
